FAERS Safety Report 24556491 (Version 1)
Quarter: 2024Q4

REPORT INFORMATION
  Report Type: Spontaneous
  Country: PT (occurrence: PT)
  Receive Date: 20241028
  Receipt Date: 20241028
  Transmission Date: 20250114
  Serious: Yes (Other)
  Sender: CIPLA
  Company Number: PT-INFARMED-T202409-767

PATIENT

DRUGS (1)
  1. ESOMEPRAZOLE [Suspect]
     Active Substance: ESOMEPRAZOLE
     Indication: Abdominal pain
     Dosage: 20 MILLIGRAM, QD
     Route: 048
     Dates: start: 20240814, end: 20240926

REACTIONS (3)
  - Anxiety [Recovered/Resolved]
  - Mood altered [Recovered/Resolved]
  - Vision blurred [Recovered/Resolved]

NARRATIVE: CASE EVENT DATE: 20240909
